FAERS Safety Report 10528074 (Version 1)
Quarter: 2014Q4

REPORT INFORMATION
  Report Type: Spontaneous
  Country: JP (occurrence: JP)
  Receive Date: 20141020
  Receipt Date: 20141020
  Transmission Date: 20150528
  Serious: Yes (Other)
  Sender: FDA-Public Use
  Company Number: JP-SA-2014SA142218

PATIENT
  Age: 70 Year
  Sex: Male

DRUGS (2)
  1. GASTER [Suspect]
     Active Substance: FAMOTIDINE
     Route: 048
  2. MYSLEE [Suspect]
     Active Substance: ZOLPIDEM TARTRATE
     Dosage: STRENGTH:10 MG
     Route: 048

REACTIONS (2)
  - Brain neoplasm [Unknown]
  - Drug effect prolonged [Unknown]
